FAERS Safety Report 13767788 (Version 3)
Quarter: 2019Q2

REPORT INFORMATION
  Report Type: Spontaneous
  Country: US (occurrence: US)
  Receive Date: 20170719
  Receipt Date: 20190612
  Transmission Date: 20190711
  Serious: Yes (Other)
  Sender: FDA-Public Use
  Company Number: US-PFIZER INC-2017309305

PATIENT
  Age: 56 Year
  Sex: Female

DRUGS (1)
  1. DILANTIN [Suspect]
     Active Substance: PHENYTOIN
     Indication: SEIZURE
     Dosage: 300 MG, DAILY, (1 TAB QAM (EVERY MORNING) AND 2 TABS QHS (EVERY BEDTIME))
     Route: 048

REACTIONS (2)
  - Thermal burn [Unknown]
  - Drug ineffective [Unknown]
